FAERS Safety Report 8815263 (Version 1)
Quarter: 2012Q4

REPORT INFORMATION
  Report Type: 
  Country: JP (occurrence: JP)
  Receive Date: 20120928
  Receipt Date: 20120928
  Transmission Date: 20130627
  Serious: Yes (Other)
  Sender: FDA-Public Use
  Company Number: JP-ASTRAZENECA-2012SE73581

PATIENT
  Age: 26 Year
  Sex: Female
  Weight: 78 kg

DRUGS (6)
  1. MARCAIN SPINAL [Suspect]
     Indication: SPINAL ANAESTHESIA
     Route: 029
  2. PREDONINE [Concomitant]
     Route: 065
  3. HYDROXYETHYLATED STARCH [Concomitant]
     Route: 065
  4. FENTANYL CITRATE [Concomitant]
     Route: 065
  5. EPHEDRINE HYDROCHLORIDE [Concomitant]
     Route: 065
  6. PHENYLEPHRINE HYDROCHLORIDE [Concomitant]
     Route: 065

REACTIONS (7)
  - Altered state of consciousness [Unknown]
  - Ventricular tachycardia [Unknown]
  - Oxygen saturation decreased [Unknown]
  - Ventricular extrasystoles [Unknown]
  - Hypotension [Unknown]
  - Vomiting [Unknown]
  - Nausea [Unknown]
